FAERS Safety Report 8490547-3 (Version None)
Quarter: 2012Q3

REPORT INFORMATION
  Report Type: 
  Country: None (occurrence: None)
  Receive Date: 20120705
  Receipt Date: 20120626
  Transmission Date: 20120928
  Serious: Yes (Hospitalization, Disabling)
  Sender: FDA-Public Use
  Company Number: DE-ABBOTT-11P-062-0887566-00

PATIENT
  Sex: Female

DRUGS (1)
  1. HUMIRA [Suspect]
     Indication: PSORIATIC ARTHROPATHY
     Route: 058
     Dates: start: 20111121

REACTIONS (9)
  - BACK PAIN [None]
  - PHOTOPSIA [None]
  - BLINDNESS [None]
  - FOOT FRACTURE [None]
  - URINARY TRACT INFECTION [None]
  - DIPLOPIA [None]
  - FALL [None]
  - COMMINUTED FRACTURE [None]
  - TOOTH FRACTURE [None]
